FAERS Safety Report 10935766 (Version 4)
Quarter: 2015Q2

REPORT INFORMATION
  Report Type: Report from Study
  Country: DE (occurrence: DE)
  Receive Date: 20150320
  Receipt Date: 20150415
  Transmission Date: 20150821
  Serious: Yes (Hospitalization)
  Sender: FDA-Public Use
  Company Number: DE-PFIZER INC-2015090444

PATIENT
  Age: 64 Year
  Sex: Male
  Weight: 72 kg

DRUGS (1)
  1. SUTENT [Suspect]
     Active Substance: SUNITINIB MALATE
     Dosage: 37.5 MG, DAILY
     Dates: start: 20110922

REACTIONS (4)
  - Anal skin tags [Recovering/Resolving]
  - Proctitis [Recovered/Resolved]
  - Anal stenosis [Recovering/Resolving]
  - Anal abscess [Recovered/Resolved]

NARRATIVE: CASE EVENT DATE: 20120320
